FAERS Safety Report 4539439-2 (Version None)
Quarter: 2004Q4

REPORT INFORMATION
  Report Type: 
  Country: None (occurrence: None)
  Receive Date: 20041222
  Receipt Date: 20041213
  Transmission Date: 20050328
  Serious: Yes (Hospitalization)
  Sender: FDA-Public Use
  Company Number: 2004GB03086

PATIENT
  Age: 43 Year
  Sex: Female

DRUGS (5)
  1. ZOLADEX [Suspect]
     Dosage: 3.6 MG SQ
     Route: 058
     Dates: end: 20040501
  2. TAMOXIFEN CITRATE [Concomitant]
  3. ARIMIDEX [Concomitant]
  4. ZOMETA [Concomitant]
  5. PAMIDRONIC ACID [Concomitant]

REACTIONS (2)
  - ACTINOMYCOSIS [None]
  - NECROSIS [None]
